FAERS Safety Report 6938316-7 (Version None)
Quarter: 2010Q3

REPORT INFORMATION
  Report Type: 
  Country: None (occurrence: None)
  Receive Date: 20100824
  Receipt Date: 20100812
  Transmission Date: 20110219
  Serious: Yes (Other)
  Sender: FDA-Public Use
  Company Number: US-PFIZER INC-2010101954

PATIENT
  Sex: Female
  Weight: 56.689 kg

DRUGS (3)
  1. TOVIAZ [Suspect]
     Indication: INCONTINENCE
     Dosage: 8 MG, 1X/DAY
     Route: 048
     Dates: end: 20100101
  2. DETROL [Suspect]
     Indication: INCONTINENCE
     Dosage: UNK
     Route: 048
  3. GLUCOSAMINE [Concomitant]
     Indication: ARTHRITIS
     Dosage: UNK

REACTIONS (6)
  - DIZZINESS [None]
  - DRUG INEFFECTIVE [None]
  - FEELING ABNORMAL [None]
  - MALAISE [None]
  - NAUSEA [None]
  - VERTIGO [None]
